FAERS Safety Report 6641674-4 (Version None)
Quarter: 2010Q1

REPORT INFORMATION
  Report Type: 
  Country: None (occurrence: None)
  Receive Date: 20100316
  Receipt Date: 20090729
  Transmission Date: 20100710
  Serious: Yes (Disabling, Other)
  Sender: FDA-Public Use
  Company Number: APP200801228

PATIENT
  Age: 14 Year
  Sex: Female

DRUGS (6)
  1. BUPIVACAINE HYDROCHLORIDE AND EPINEPHRINE [Suspect]
     Indication: ARTHROSCOPY
     Dosage: 20 ML, LEFT SHOULDER, INTRA-ARTICULAR
     Route: 014
  2. SENSORCAINE [Suspect]
     Indication: ARTHROSCOPY
     Dosage: SEE IMAGE
  3. SENSORCAINE [Suspect]
     Indication: DEBRIDEMENT
     Dosage: SEE IMAGE
  4. SORENSON AMBIT PAIN PUMP [Suspect]
     Indication: DRUG USE FOR UNKNOWN INDICATION
     Dosage: LEFT SHOULDER
  5. PAIN PUMP [Suspect]
     Indication: DRUG USE FOR UNKNOWN INDICATION
     Dosage: RIGHT SHOULDER
  6. LACTATED RINGER'S SOLUTION (RINGER-LACTATE) [Concomitant]

REACTIONS (3)
  - CHONDROLYSIS [None]
  - JOINT RANGE OF MOTION DECREASED [None]
  - PAIN [None]
